FAERS Safety Report 9846338 (Version 1)
Quarter: 2014Q1

REPORT INFORMATION
  Report Type: Spontaneous
  Country: US (occurrence: US)
  Receive Date: 20140127
  Receipt Date: 20140127
  Transmission Date: 20141002
  Serious: Yes (Other)
  Sender: FDA-Public Use
  Company Number: US-TEVA-458355USA

PATIENT
  Age: 70 Year
  Sex: Female
  Weight: 92.16 kg

DRUGS (1)
  1. TREANDA [Suspect]
     Dates: start: 201308

REACTIONS (8)
  - Haemoptysis [Recovered/Resolved]
  - Epistaxis [Recovered/Resolved]
  - Thirst [Not Recovered/Not Resolved]
  - Headache [Not Recovered/Not Resolved]
  - Asthenia [Not Recovered/Not Resolved]
  - Fatigue [Not Recovered/Not Resolved]
  - Malaise [Not Recovered/Not Resolved]
  - Decreased appetite [Unknown]
